FAERS Safety Report 8439012 (Version 2)
Quarter: 2012Q4

REPORT INFORMATION
  Report Type: Spontaneous
  Country: US (occurrence: None)
  Receive Date: 20120104
  Receipt Date: 20120508
  Transmission Date: 20130627
  Serious: No
  Sender: FDA-Public Use
  Company Number: 2011HGS-002692

PATIENT
  Age: 64 Year
  Sex: Female
  Weight: 83.01 kg

DRUGS (9)
  1. BENLYSTA [Suspect]
     Indication: SYSTEMIC LUPUS ERYTHEMATOSUS
     Dosage: EVERY 2 WEEKS X 3 THEN EVERY 4 WEEKS, INTRAVENOUS DRIP
     Route: 041
     Dates: start: 20110728
  2. PLAQUENIL (HYDROCXYCHLOROQUINE SULFATE) (HYDROXYCHLOROQUINE SULFATE) [Concomitant]
  3. REQUIP (ROPINIROLE HYDROCHLORIDE) (ROPINIROLE HYDROCHLORIDE) [Concomitant]
  4. ATENOLOL [Concomitant]
  5. PROZAC (FLUOXETINE HYDROCHLORIDE) (FLUOXETINE HYDROCHLORIDE0 [Concomitant]
  6. TRAZODONE (TRAZODONE) (TRAZODONE) [Concomitant]
  7. XANAX [Concomitant]
  8. CALCIUM (CALCIUM) (CALCIUM) [Concomitant]
  9. METHOTREXATE (METHOTREXATE) [Concomitant]

REACTIONS (3)
  - Blood glucose increased [None]
  - Migraine [None]
  - Insomnia [None]
